FAERS Safety Report 14154018 (Version 4)
Quarter: 2020Q3

REPORT INFORMATION
  Report Type: Report from Study
  Country: NZ (occurrence: NZ)
  Receive Date: 20171102
  Receipt Date: 20171228
  Transmission Date: 20201105
  Serious: Yes (Hospitalization)
  Sender: FDA-Public Use
  Company Number: NZ-JNJFOC-20171013481

PATIENT
  Age: 41 Year
  Sex: Male
  Weight: 70.3 kg

DRUGS (7)
  1. PANADOL [Concomitant]
     Active Substance: ACETAMINOPHEN
     Indication: CROHN^S DISEASE
     Route: 048
     Dates: start: 2008
  2. METHOTREXATE. [Concomitant]
     Active Substance: METHOTREXATE
     Dosage: SINCE 01?UNK?2010
     Route: 058
     Dates: start: 2010
  3. BUSCOPAN [Concomitant]
     Active Substance: BUTYLSCOPOLAMINE BROMIDE
     Route: 048
     Dates: start: 2008
  4. USTEKINUMAB [Suspect]
     Active Substance: USTEKINUMAB
     Indication: CROHN^S DISEASE
     Dosage: MEDICATION KIT NO: 1000916
     Route: 058
     Dates: start: 20140611
  5. FOLIC ACID. [Concomitant]
     Active Substance: FOLIC ACID
     Dosage: SINCE 01?UNK?2010
     Route: 048
     Dates: start: 2010
  6. CHOLECALCIFEROL [Concomitant]
     Active Substance: CHOLECALCIFEROL
     Dosage: SINCE 01?UNK?2010
     Route: 048
     Dates: start: 2010
  7. USTEKINUMAB [Suspect]
     Active Substance: USTEKINUMAB
     Route: 058

REACTIONS (1)
  - Sialoadenitis [Recovered/Resolved]

NARRATIVE: CASE EVENT DATE: 20171005
